FAERS Safety Report 20374504 (Version 1)
Quarter: 2022Q1

REPORT INFORMATION
  Report Type: Spontaneous
  Country: US (occurrence: US)
  Receive Date: 20220125
  Receipt Date: 20220125
  Transmission Date: 20220423
  Serious: No
  Sender: FDA-Public Use
  Company Number: US-MYLANLABS-2022M1004302

PATIENT
  Sex: Female

DRUGS (1)
  1. ESTRADIOL TRANSDERMAL SYSTEM [Suspect]
     Active Substance: ESTRADIOL
     Indication: Product used for unknown indication
     Dosage: 0.05 MILLIGRAM, BIWEEKLY
     Route: 062

REACTIONS (3)
  - Breast tenderness [Unknown]
  - Mood swings [Unknown]
  - Memory impairment [Unknown]
